FAERS Safety Report 5358403-7 (Version None)
Quarter: 2007Q2

REPORT INFORMATION
  Report Type: 
  Country: None (occurrence: None)
  Receive Date: 20070615
  Receipt Date: 20070605
  Transmission Date: 20071010
  Serious: Yes (Other)
  Sender: FDA-Public Use
  Company Number: PHBS2007JP08870

PATIENT
  Age: 68 Year
  Sex: Female

DRUGS (5)
  1. DIOVAN [Suspect]
     Indication: HYPERTENSION
     Dosage: 80 MG/DAY
     Route: 048
     Dates: start: 20070304
  2. DIOVAN [Suspect]
     Dosage: 160 MG/DAY
     Route: 048
  3. DIOVAN [Suspect]
     Dosage: 80 MG/DAY
     Route: 048
  4. TIMOPTIC [Concomitant]
     Indication: GLAUCOMA
     Route: 047
     Dates: start: 20050901
  5. CLARITIN [Concomitant]
     Dosage: 10 MG, UNK
     Route: 048
     Dates: start: 20070304

REACTIONS (2)
  - GLAUCOMA [None]
  - VISUAL DISTURBANCE [None]
